FAERS Safety Report 23039525 (Version 1)
Quarter: 2023Q4

REPORT INFORMATION
  Report Type: Report from Study
  Country: JP (occurrence: JP)
  Receive Date: 20231006
  Receipt Date: 20231006
  Transmission Date: 20240110
  Serious: Yes (Other)
  Sender: FDA-Public Use
  Company Number: JP-SUN PHARMACEUTICAL INDUSTRIES LTD-2023R1-410887

PATIENT
  Age: 59 Year
  Sex: Female

DRUGS (6)
  1. ETIZOLAM [Suspect]
     Active Substance: ETIZOLAM
     Indication: Psychotic symptom
     Dosage: 0.5 MILLIGRAM
     Route: 065
  2. FLUVOXAMINE [Suspect]
     Active Substance: FLUVOXAMINE
     Indication: Psychotic symptom
     Dosage: 75 MILLIGRAM
     Route: 065
  3. FLUVOXAMINE [Suspect]
     Active Substance: FLUVOXAMINE
     Dosage: 25 MILLIGRAM
     Route: 065
  4. FLURAZEPAM [Suspect]
     Active Substance: FLURAZEPAM HYDROCHLORIDE
     Indication: Psychotic symptom
     Dosage: 15 MILLIGRAM
     Route: 065
  5. MIANSERIN [Suspect]
     Active Substance: MIANSERIN
     Indication: Psychotic symptom
     Dosage: 30 MILLIGRAM
     Route: 065
  6. PENTOBARBITAL [Suspect]
     Active Substance: PENTOBARBITAL
     Indication: Psychotic symptom
     Dosage: 50 MILLIGRAM
     Route: 065

REACTIONS (1)
  - Malocclusion [Unknown]
